FAERS Safety Report 4816239-7 (Version None)
Quarter: 2005Q4

REPORT INFORMATION
  Report Type: 
  Country: None (occurrence: None)
  Receive Date: 20051026
  Receipt Date: 20051017
  Transmission Date: 20060501
  Serious: Yes (Other)
  Sender: FDA-Public Use
  Company Number: GXKR2005JP01756

PATIENT
  Sex: 0

DRUGS (5)
  1. RIFAMPICIN [Suspect]
     Indication: TUBERCULOUS PLEURISY
     Dosage: ORAL
     Route: 048
  2. AMLODIPINE BESYLATE [Suspect]
     Dosage: 5 MG
  3. ATENOLOL [Suspect]
     Dosage: 50 MG
  4. URAPIDIL (URAPIDIL) [Suspect]
     Dosage: 30 MG
  5. CANDESARTAN (CANDESARTAN) [Suspect]
     Dosage: 4 MG

REACTIONS (6)
  - BLOOD CREATININE INCREASED [None]
  - BLOOD PRESSURE INCREASED [None]
  - DIALYSIS [None]
  - DRUG INTERACTION [None]
  - FATIGUE [None]
  - OEDEMA [None]
